FAERS Safety Report 21227311 (Version 1)
Quarter: 2022Q3

REPORT INFORMATION
  Report Type: Spontaneous
  Country: PR (occurrence: PR)
  Receive Date: 20220818
  Receipt Date: 20220818
  Transmission Date: 20221027
  Serious: Yes (Death, Other)
  Sender: FDA-Public Use
  Company Number: US-BRISTOL-MYERS SQUIBB COMPANY-2022-088551

PATIENT
  Age: 86 Year
  Sex: Female
  Weight: 59.87 kg

DRUGS (1)
  1. REVLIMID [Suspect]
     Active Substance: LENALIDOMIDE
     Indication: Plasma cell myeloma
     Dosage: DOSE : 1 CAPSULE;     FREQ : DAILY
     Route: 048
     Dates: start: 201910

REACTIONS (3)
  - Mental disorder [Fatal]
  - Skin cancer [Unknown]
  - Dementia Alzheimer^s type [Unknown]

NARRATIVE: CASE EVENT DATE: 20220709
